FAERS Safety Report 25236173 (Version 1)
Quarter: 2025Q2

REPORT INFORMATION
  Report Type: Spontaneous
  Country: IT (occurrence: IT)
  Receive Date: 20250424
  Receipt Date: 20250424
  Transmission Date: 20250717
  Serious: Yes (Other)
  Sender: MYLAN
  Company Number: None

PATIENT
  Age: 24 Year
  Sex: Female

DRUGS (1)
  1. XANAX [Suspect]
     Active Substance: ALPRAZOLAM
     Indication: Anxiety
     Dates: start: 20241210, end: 20241210

REACTIONS (4)
  - Substance abuse [Recovered/Resolved]
  - Headache [Recovering/Resolving]
  - Dizziness [Recovering/Resolving]
  - Somnolence [Recovered/Resolved]

NARRATIVE: CASE EVENT DATE: 20241210
